FAERS Safety Report 9732894 (Version 1)
Quarter: 2013Q4

REPORT INFORMATION
  Report Type: Spontaneous
  Country: US (occurrence: US)
  Receive Date: 20131204
  Receipt Date: 20131204
  Transmission Date: 20140711
  Serious: No
  Sender: FDA-Public Use
  Company Number: US-GILEAD-2009-0022122

PATIENT
  Sex: Male

DRUGS (8)
  1. LETAIRIS [Suspect]
     Indication: PULMONARY ARTERIAL HYPERTENSION
     Route: 048
     Dates: start: 20090312
  2. COUMADIN [Concomitant]
  3. FUROSEMIDE [Concomitant]
  4. TOPROL XL [Concomitant]
  5. ZOCOR [Concomitant]
  6. SPIRIVA [Concomitant]
  7. VALTREX [Concomitant]
  8. MULTIVITAMIN [Concomitant]

REACTIONS (1)
  - Dyspnoea [Recovering/Resolving]
